FAERS Safety Report 10877895 (Version 1)
Quarter: 2015Q1

REPORT INFORMATION
  Report Type: Spontaneous
  Country: US (occurrence: US)
  Receive Date: 20150302
  Receipt Date: 20150302
  Transmission Date: 20150721
  Serious: Yes (Other)
  Sender: FDA-Public Use
  Company Number: US-BAYER-2015-026663

PATIENT
  Age: 82 Year
  Sex: Male

DRUGS (2)
  1. CIPRO [Suspect]
     Active Substance: CIPROFLOXACIN HYDROCHLORIDE
     Indication: PROSTATITIS
  2. CIPRO [Suspect]
     Active Substance: CIPROFLOXACIN HYDROCHLORIDE
     Indication: PROSTATITIS
     Dosage: UNK

REACTIONS (10)
  - Bacterial test positive [None]
  - Gait disturbance [None]
  - Urinary tract infection [None]
  - Muscular weakness [None]
  - Pain [None]
  - Acne [None]
  - Asthenia [None]
  - Hypersensitivity [None]
  - Pain in extremity [None]
  - Abasia [None]
